FAERS Safety Report 7629060-1 (Version None)
Quarter: 2011Q3

REPORT INFORMATION
  Report Type: 
  Country: None (occurrence: None)
  Receive Date: 20110722
  Receipt Date: 20110718
  Transmission Date: 20111222
  Serious: Yes (Hospitalization)
  Sender: FDA-Public Use
  Company Number: US-B.I. PHARMACEUTICALS,INC./RIDGEFIELD-2011-BP-18021BP

PATIENT
  Sex: Female

DRUGS (7)
  1. NASACORT [Concomitant]
     Indication: SINUSITIS
     Dates: start: 20010101
  2. VENTOLIN HFA [Concomitant]
     Indication: ASTHMA
     Dates: start: 20100101
  3. BENAZEPRIL HYDROCHLORIDE [Concomitant]
     Indication: HYPERTENSION
     Dates: start: 20070101
  4. SULFATRIM [Concomitant]
     Indication: RENAL DISORDER
     Dates: start: 19660101
  5. ATROVENT HFA [Suspect]
     Indication: ASTHMA
     Dosage: 68 MCG
     Route: 055
     Dates: start: 20100101
  6. SYMBICORT [Concomitant]
     Indication: ASTHMA
     Dates: start: 20080101
  7. OXYBUTYNIN [Concomitant]
     Indication: POLLAKIURIA
     Dates: start: 20010101

REACTIONS (3)
  - PYREXIA [None]
  - ATRIAL FIBRILLATION [None]
  - DYSPNOEA [None]
